FAERS Safety Report 4745023-8 (Version None)
Quarter: 2005Q3

REPORT INFORMATION
  Report Type: 
  Country: None (occurrence: None)
  Receive Date: 20050812
  Receipt Date: 20050812
  Transmission Date: 20060218
  Serious: Yes (Hospitalization)
  Sender: FDA-Public Use
  Company Number: None

PATIENT
  Age: 75 Year
  Sex: Female
  Weight: 67.586 kg

DRUGS (9)
  1. CARBOPLATIN [Suspect]
     Indication: OVARIAN CANCER
     Dosage: AUC 5, IV, D1 Q 3 WKS
     Route: 042
     Dates: start: 20050427
  2. CARBOPLATIN [Suspect]
     Indication: OVARIAN CANCER
     Dosage: AUC 5, IV, D1 Q 3 WKS
     Route: 042
     Dates: start: 20050503
  3. CARBOPLATIN [Suspect]
     Indication: OVARIAN CANCER
     Dosage: AUC 5, IV, D1 Q 3 WKS
     Route: 042
     Dates: start: 20050517
  4. CARBOPLATIN [Suspect]
     Indication: OVARIAN CANCER
     Dosage: AUC 5, IV, D1 Q 3 WKS
     Route: 042
     Dates: start: 20050524
  5. GEMCITABINE [Suspect]
     Indication: OVARIAN CANCER
     Dosage: 1000MG/M2 IV D1, 8 Q 3 WEEKS
     Route: 042
     Dates: start: 20050607
  6. GEMCITABINE [Suspect]
     Indication: OVARIAN CANCER
     Dosage: 1000MG/M2 IV D1, 8 Q 3 WEEKS
     Route: 042
     Dates: start: 20050614
  7. GEMCITABINE [Suspect]
     Indication: OVARIAN CANCER
     Dosage: 1000MG/M2 IV D1, 8 Q 3 WEEKS
     Route: 042
     Dates: start: 20050627
  8. GEMCITABINE [Suspect]
     Indication: OVARIAN CANCER
     Dosage: 1000MG/M2 IV D1, 8 Q 3 WEEKS
     Route: 042
     Dates: start: 20050705
  9. GEMCITABINE [Suspect]
     Indication: OVARIAN CANCER
     Dosage: 1000MG/M2 IV D1, 8 Q 3 WEEKS
     Route: 042
     Dates: start: 20050719

REACTIONS (1)
  - BODY TEMPERATURE INCREASED [None]
